FAERS Safety Report 4937153-2 (Version None)
Quarter: 2006Q1

REPORT INFORMATION
  Report Type: 
  Country: None (occurrence: None)
  Receive Date: 20060307
  Receipt Date: 20060307
  Transmission Date: 20060701
  Serious: Yes (Other)
  Sender: FDA-Public Use
  Company Number: None

PATIENT
  Age: 11 Year
  Sex: Male
  Weight: 39.9165 kg

DRUGS (1)
  1. STRATTERA [Suspect]
     Indication: ATTENTION DEFICIT/HYPERACTIVITY DISORDER
     Dosage: 40 MG QD PO
     Route: 048
     Dates: start: 20050929, end: 20060113

REACTIONS (5)
  - DISTRACTIBILITY [None]
  - EDUCATIONAL PROBLEM [None]
  - SUICIDAL IDEATION [None]
  - THINKING ABNORMAL [None]
  - TIC [None]
